FAERS Safety Report 7929016-5 (Version None)
Quarter: 2011Q4

REPORT INFORMATION
  Report Type: 
  Country: None (occurrence: None)
  Receive Date: 20111118
  Receipt Date: 20111103
  Transmission Date: 20120403
  Serious: Yes (Other)
  Sender: FDA-Public Use
  Company Number: PT-ROCHE-1009816

PATIENT
  Sex: Male

DRUGS (1)
  1. OSELTAMIVIR [Suspect]
     Indication: INFLUENZA
     Route: 064

REACTIONS (8)
  - CYANOSIS NEONATAL [None]
  - MATERNAL DRUGS AFFECTING FOETUS [None]
  - SKIN GRAFT [None]
  - DERMATITIS BULLOUS [None]
  - MUSCLE CONTRACTURE [None]
  - MATERNAL EXPOSURE TIMING UNSPECIFIED [None]
  - HYPOTONIA NEONATAL [None]
  - SKIN ULCER [None]
